FAERS Safety Report 9129100 (Version 1)
Quarter: 2013Q1

REPORT INFORMATION
  Report Type: Spontaneous
  Country: US (occurrence: US)
  Receive Date: 20130125
  Receipt Date: 20130125
  Transmission Date: 20140127
  Serious: No
  Sender: FDA-Public Use
  Company Number: US-BRACCO-008447

PATIENT
  Age: 33 Year
  Sex: Male
  Weight: 136 kg

DRUGS (2)
  1. MULTIHANCE [Suspect]
     Indication: NUCLEAR MAGNETIC RESONANCE IMAGING BRAIN
     Route: 042
     Dates: start: 20120816, end: 20120816
  2. MULTIHANCE [Suspect]
     Indication: BLINDNESS
     Route: 042
     Dates: start: 20120816, end: 20120816

REACTIONS (3)
  - Throat tightness [Recovered/Resolved]
  - Hypoaesthesia [Recovered/Resolved]
  - Nausea [Recovered/Resolved]
